FAERS Safety Report 7280870-2 (Version None)
Quarter: 2011Q1

REPORT INFORMATION
  Report Type: 
  Country: None (occurrence: None)
  Receive Date: 20110208
  Receipt Date: 20110202
  Transmission Date: 20110831
  Serious: No
  Sender: FDA-Public Use
  Company Number: US-PFIZER INC-2011024415

PATIENT
  Sex: Female
  Weight: 52.154 kg

DRUGS (2)
  1. PREPARATION H HYDROCORTISONE [Suspect]
     Dosage: UNK, 2X/DAY
     Route: 054
     Dates: start: 20110101, end: 20110126
  2. PREPARATION H HEMORRHOIDAL SUPPOSITORIES [Suspect]

REACTIONS (1)
  - DRUG INEFFECTIVE [None]
